FAERS Safety Report 3629976 (Version 1)
Quarter: 2020Q3

REPORT INFORMATION
  Report Type: Spontaneous
  Country: GB (occurrence: None)
  Receive Date: 20010326
  Receipt Date: 20010326
  Transmission Date: 20201104
  Serious: Yes (Death, Life-Threatening)
  Sender: FDA-Public Use
  Company Number: 01H-167-0104578-00

PATIENT
  Sex: Male

DRUGS (9)
  1. PROPOFOL. [Suspect]
     Active Substance: PROPOFOL
  2. NITROUS OXIDE. [Suspect]
     Active Substance: NITROUS OXIDE
  3. MIDAZOLAM HYDROCHLORIDE. [Suspect]
     Active Substance: MIDAZOLAM HYDROCHLORIDE
  4. VECURONIUM [Suspect]
     Active Substance: VECURONIUM BROMIDE
  5. FENTANYL (FENTANYL) [Suspect]
     Active Substance: FENTANYL
  6. OXYGEN. [Suspect]
     Active Substance: OXYGEN
  7. ENFLURANE. [Suspect]
     Active Substance: ENFLURANE
     Indication: ANAESTHESIA
     Dosage: INHALATION
     Route: 055
     Dates: start: 20010310, end: 20010310
  8. EPHEDRINE. [Suspect]
     Active Substance: EPHEDRINE
  9. GLYCOPYRRONIUM BROMIDE (GLYCOPYRRONIUM BROMIDE) [Suspect]
     Active Substance: GLYCOPYRRONIUM

REACTIONS (1)
  - Cardiac arrest [None]

NARRATIVE: CASE EVENT DATE: 20010310
